FAERS Safety Report 5003496-X (Version None)
Quarter: 2006Q2

REPORT INFORMATION
  Report Type: 
  Country: None (occurrence: None)
  Receive Date: 20060512
  Receipt Date: 20060429
  Transmission Date: 20061013
  Serious: Yes (Hospitalization)
  Sender: FDA-Public Use
  Company Number: 163-C5013-06040154

PATIENT
  Age: 87 Year
  Sex: Female
  Weight: 40 kg

DRUGS (14)
  1. LENALIDOMIDE CC-5013 (CAPSULES) [Suspect]
     Indication: MULTIPLE MYELOMA
     Dosage: 25 MG, QD ON DAYS 1-21 Q28D, ORAL
     Route: 048
     Dates: start: 20060327, end: 20060402
  2. DEXAMETHASONE [Suspect]
     Indication: MULTIPLE MYELOMA
     Dosage: 40 MG, QD ON DAYS 1-4, 9-12, 17-20
     Dates: start: 20060327, end: 20060330
  3. DARVOCET [Concomitant]
  4. DURAGESIC (FENTANYL) (POULTICE OR PATCH) [Concomitant]
  5. FERROUS SULFATE TAB [Concomitant]
  6. MIRALAX [Concomitant]
  7. PROTONIX [Concomitant]
  8. SYNTHROID [Concomitant]
  9. VITAMINS (VITAMINS) [Concomitant]
  10. XALATAN [Concomitant]
  11. LISINOPRIL [Concomitant]
  12. LASIX [Concomitant]
  13. FOSAMAX [Concomitant]
  14. LEVAQUIN [Concomitant]

REACTIONS (7)
  - BACK PAIN [None]
  - CEREBRAL ATROPHY [None]
  - DELIRIUM [None]
  - ENCEPHALOPATHY [None]
  - HAEMOGLOBIN DECREASED [None]
  - HYPONATRAEMIA [None]
  - TRANSIENT ISCHAEMIC ATTACK [None]
